FAERS Safety Report 6315539-1 (Version None)
Quarter: 2009Q3

REPORT INFORMATION
  Report Type: 
  Country: None (occurrence: None)
  Receive Date: 20090819
  Receipt Date: 20090730
  Transmission Date: 20100115
  Serious: Yes (Hospitalization)
  Sender: FDA-Public Use
  Company Number: FR-BAUSCH-2009BL003816

PATIENT
  Age: 40 Year
  Sex: Male

DRUGS (14)
  1. ATROPINE [Suspect]
     Indication: ULCERATIVE KERATITIS
     Route: 047
     Dates: start: 20090517, end: 20090521
  2. INDOCOLLYRE 0.1% COLLYRE [Suspect]
     Indication: ULCERATIVE KERATITIS
     Route: 047
     Dates: start: 20090517, end: 20090521
  3. PRIMAXIN [Suspect]
     Indication: SURGERY
     Route: 042
     Dates: start: 20050517, end: 20090521
  4. TAVANIC [Suspect]
     Indication: SURGERY
     Route: 042
     Dates: start: 20090517, end: 20090520
  5. CILOXAN [Suspect]
     Indication: ULCERATIVE KERATITIS
     Route: 047
     Dates: start: 20090517, end: 20090521
  6. REFRESH [Suspect]
     Indication: ULCERATIVE KERATITIS
     Route: 047
     Dates: start: 20090517, end: 20090521
  7. MYDRIATICUM [Suspect]
     Indication: ULCERATIVE KERATITIS
     Route: 047
     Dates: start: 20090517, end: 20090521
  8. FUNGIZONE /USA/ [Concomitant]
     Indication: FUNGAL INFECTION
     Dates: start: 20090414, end: 20090513
  9. PEVARYL [Concomitant]
     Indication: FUNGAL INFECTION
     Dates: start: 20090414, end: 20090513
  10. VIRLIX [Concomitant]
     Indication: FUNGAL INFECTION
     Dates: start: 20090414, end: 20090513
  11. CIFLOX [Concomitant]
     Route: 047
     Dates: start: 20090414, end: 20090424
  12. LAMISIL /00992601/ [Concomitant]
     Indication: FUNGAL INFECTION
     Dates: start: 20090509, end: 20090515
  13. BRISTOPEN [Concomitant]
     Indication: FUNGAL INFECTION
     Dates: start: 20090509, end: 20090515
  14. KETODERM [Concomitant]
     Indication: FUNGAL INFECTION
     Dates: start: 20090509, end: 20090515

REACTIONS (3)
  - EOSINOPHILIA [None]
  - PYREXIA [None]
  - RASH MACULO-PAPULAR [None]
